FAERS Safety Report 4274268-9 (Version None)
Quarter: 2004Q1

REPORT INFORMATION
  Report Type: 
  Country: None (occurrence: None)
  Receive Date: 20040115
  Receipt Date: 20040103
  Transmission Date: 20041129
  Serious: Yes (Hospitalization)
  Sender: FDA-Public Use
  Company Number: K200400013

PATIENT
  Age: 76 Year
  Sex: Male

DRUGS (1)
  1. ALTACE [Suspect]

REACTIONS (4)
  - ATRIOVENTRICULAR BLOCK [None]
  - BLOOD POTASSIUM DECREASED [None]
  - EJECTION FRACTION DECREASED [None]
  - RENAL FAILURE [None]
